FAERS Safety Report 20395032 (Version 1)
Quarter: 2022Q1

REPORT INFORMATION
  Report Type: Spontaneous
  Country: ES (occurrence: ES)
  Receive Date: 20220130
  Receipt Date: 20220130
  Transmission Date: 20220423
  Serious: Yes (Other)
  Sender: FDA-Public Use
  Company Number: ES-GYP-001011

PATIENT
  Age: 83 Year
  Sex: Female

DRUGS (5)
  1. PREDNISONE [Suspect]
     Active Substance: PREDNISONE
     Indication: Necrotising retinitis
     Route: 048
  2. ACYCLOVIR [Suspect]
     Active Substance: ACYCLOVIR
     Indication: Necrotising retinitis
     Route: 042
  3. DEXAMETHASONE [Suspect]
     Active Substance: DEXAMETHASONE
     Indication: Necrotising retinitis
     Route: 065
  4. CYCLOPENTOLATE [Suspect]
     Active Substance: CYCLOPENTOLATE
     Indication: Necrotising retinitis
     Route: 065
  5. PREDNISONE [Suspect]
     Active Substance: PREDNISONE
     Indication: Necrotising retinitis
     Route: 048

REACTIONS (5)
  - Necrotising retinitis [Unknown]
  - Disease progression [Unknown]
  - Haemorrhage [Unknown]
  - Papilloedema [Recovered/Resolved]
  - Product use in unapproved indication [Unknown]
